FAERS Safety Report 18324166 (Version 1)
Quarter: 2020Q3

REPORT INFORMATION
  Report Type: Spontaneous
  Country: US (occurrence: US)
  Receive Date: 20200928
  Receipt Date: 20200928
  Transmission Date: 20201103
  Serious: No
  Sender: FDA-Public Use
  Company Number: US-ALKERMES INC.-ALK-2020-003739

PATIENT
  Age: 49 Year
  Sex: Female
  Weight: 58.96 kg

DRUGS (4)
  1. VIVITROL [Suspect]
     Active Substance: NALTREXONE
     Indication: ALCOHOLISM
     Dosage: 380 MILLIGRAM, QMO
     Route: 030
     Dates: start: 20200827, end: 20200827
  2. PROZAC [Concomitant]
     Active Substance: FLUOXETINE HYDROCHLORIDE
     Indication: PRODUCT USED FOR UNKNOWN INDICATION
     Dosage: UNK
     Route: 065
  3. MELATONIN [Concomitant]
     Active Substance: MELATONIN
     Indication: PRODUCT USED FOR UNKNOWN INDICATION
     Dosage: UNK
     Route: 065
  4. TRAZODONE [Concomitant]
     Active Substance: TRAZODONE HYDROCHLORIDE
     Indication: PRODUCT USED FOR UNKNOWN INDICATION
     Dosage: UNK UNK, PRN
     Route: 065

REACTIONS (10)
  - Injection site erythema [Recovering/Resolving]
  - Injection site pruritus [Recovering/Resolving]
  - Injection site mass [Recovering/Resolving]
  - Injection site induration [Recovering/Resolving]
  - Injection site reaction [Recovering/Resolving]
  - Injection site discomfort [Recovering/Resolving]
  - Infection [Not Recovered/Not Resolved]
  - Injection site swelling [Recovering/Resolving]
  - Nausea [Not Recovered/Not Resolved]
  - Injection site warmth [Recovering/Resolving]

NARRATIVE: CASE EVENT DATE: 2020
